FAERS Safety Report 4312998-0 (Version None)
Quarter: 2004Q1

REPORT INFORMATION
  Report Type: 
  Country: None (occurrence: None)
  Receive Date: 20040305
  Receipt Date: 20040305
  Transmission Date: 20041129
  Serious: Yes (Life-Threatening, Hospitalization, Disabling)
  Sender: FDA-Public Use
  Company Number: None

PATIENT
  Age: 58 Year
  Sex: Male
  Weight: 74.6 kg

DRUGS (2)
  1. TNKASE [Suspect]
     Indication: MYOCARDIAL INFARCTION
     Dosage: 40 MG ONCE IV
     Route: 042
     Dates: start: 20031119, end: 20031119
  2. HEPARIN [Suspect]
     Indication: MYOCARDIAL INFARCTION
     Dosage: 4000 UNITS ONCE IV
     Route: 042
     Dates: start: 20031119, end: 20031120

REACTIONS (13)
  - BALANCE DISORDER [None]
  - BLINDNESS UNILATERAL [None]
  - BRAIN OEDEMA [None]
  - CEREBRAL HAEMORRHAGE [None]
  - COMPUTERISED TOMOGRAM ABNORMAL [None]
  - COORDINATION ABNORMAL [None]
  - HEADACHE [None]
  - HYPOTENSION [None]
  - HYPOTONIA [None]
  - INTRACRANIAL HAEMATOMA [None]
  - NAUSEA [None]
  - VISUAL FIELD DEFECT [None]
  - VOMITING [None]
